FAERS Safety Report 12219363 (Version 1)
Quarter: 2016Q1

REPORT INFORMATION
  Report Type: Spontaneous
  Country: US (occurrence: US)
  Receive Date: 20160329
  Receipt Date: 20160329
  Transmission Date: 20160526
  Serious: Yes (Life-Threatening, Other)
  Sender: FDA-Public Use
  Company Number: US-MDT-ADR-2016-00585

PATIENT
  Age: 65 Year
  Sex: Female

DRUGS (2)
  1. MORPHINE DRUG, UNKNOWN [Suspect]
     Active Substance: MORPHINE
     Dosage: 3.2MG/DAY
     Route: 037
  2. COMPOUNDED BACLOFEN [Suspect]
     Active Substance: BACLOFEN
     Indication: MUSCLE SPASTICITY
     Dosage: 711.8 MCG/DAY
     Route: 037

REACTIONS (1)
  - Unresponsive to stimuli [Unknown]
